FAERS Safety Report 23220530 (Version 1)
Quarter: 2023Q4

REPORT INFORMATION
  Report Type: Spontaneous
  Country: US (occurrence: US)
  Receive Date: 20231123
  Receipt Date: 20231123
  Transmission Date: 20240110
  Serious: Yes (Hospitalization, Other)
  Sender: FDA-Public Use
  Company Number: US-BAXTER-2023BAX035878

PATIENT
  Age: 41 Year
  Sex: Male

DRUGS (1)
  1. METRONIDAZOLE [Suspect]
     Active Substance: METRONIDAZOLE
     Dosage: 250 MG, 3 TIMES DAILY
     Route: 065

REACTIONS (13)
  - Acute generalised exanthematous pustulosis [Unknown]
  - Rash pruritic [Unknown]
  - Pyrexia [Unknown]
  - Rash pustular [Unknown]
  - Pustule [Unknown]
  - Erythema [Unknown]
  - Urticaria [Unknown]
  - Target skin lesion [Unknown]
  - Face oedema [Unknown]
  - Oedema peripheral [Unknown]
  - Leukocytosis [Unknown]
  - Dermatitis [Unknown]
  - Eosinophilic cellulitis [Unknown]
